FAERS Safety Report 6944856-7 (Version None)
Quarter: 2010Q3

REPORT INFORMATION
  Report Type: 
  Country: None (occurrence: None)
  Receive Date: 20100827
  Receipt Date: 20100817
  Transmission Date: 20110219
  Serious: Yes (Hospitalization, Other)
  Sender: FDA-Public Use
  Company Number: JP-BAYER-200812364BYL

PATIENT
  Age: 60 Year
  Sex: Male
  Weight: 69 kg

DRUGS (11)
  1. NEXAVAR [Suspect]
     Indication: RENAL CELL CARCINOMA
     Dosage: UNIT DOSE: 200 MG
     Route: 048
     Dates: start: 20080820, end: 20080922
  2. NEXAVAR [Suspect]
     Dosage: UNIT DOSE: 200 MG
     Route: 048
     Dates: start: 20081028, end: 20090203
  3. NEXAVAR [Suspect]
     Dosage: UNIT DOSE: 200 MG
     Route: 048
     Dates: start: 20090331
  4. ADALAT CC [Concomitant]
     Route: 048
     Dates: start: 20080820, end: 20080922
  5. ADALAT CC [Concomitant]
     Route: 048
     Dates: start: 20080923
  6. DIOVAN [Concomitant]
     Route: 048
     Dates: start: 20081112
  7. DIOVAN [Concomitant]
     Route: 048
     Dates: start: 20080820, end: 20081111
  8. TENORMIN [Concomitant]
     Route: 048
     Dates: start: 20080820
  9. MEILAX [Concomitant]
     Route: 048
     Dates: start: 20080820
  10. MOBIC [Concomitant]
     Route: 048
     Dates: start: 20080820
  11. ZYLORIC [Concomitant]
     Route: 048
     Dates: start: 20081209

REACTIONS (12)
  - ABDOMINAL PAIN [None]
  - DECREASED APPETITE [None]
  - DIARRHOEA [None]
  - HEPATIC FUNCTION ABNORMAL [None]
  - HYPERTENSION [None]
  - OROPHARYNGEAL PAIN [None]
  - PALMAR-PLANTAR ERYTHRODYSAESTHESIA SYNDROME [None]
  - PANCREATITIS ACUTE [None]
  - PLATELET COUNT DECREASED [None]
  - PROTEINURIA [None]
  - PYREXIA [None]
  - TOXIC SKIN ERUPTION [None]
